FAERS Safety Report 13231297 (Version 3)
Quarter: 2017Q4

REPORT INFORMATION
  Report Type: Spontaneous
  Country: IT (occurrence: IT)
  Receive Date: 20170214
  Receipt Date: 20171220
  Transmission Date: 20180320
  Serious: Yes (Life-Threatening)
  Sender: FDA-Public Use
  Company Number: IT-JNJFOC-20170212248

PATIENT
  Age: 64 Year
  Sex: Male
  Weight: 100 kg

DRUGS (8)
  1. XARELTO [Suspect]
     Active Substance: RIVAROXABAN
     Indication: ATRIAL FIBRILLATION
     Route: 048
     Dates: start: 20130925, end: 20131106
  2. MICARDISPLUS [Concomitant]
     Active Substance: HYDROCHLOROTHIAZIDE\TELMISARTAN
     Route: 065
  3. BISOPROLOL [Concomitant]
     Active Substance: BISOPROLOL
     Route: 065
  4. TELMISARTAN. [Concomitant]
     Active Substance: TELMISARTAN
     Route: 065
     Dates: start: 20130925, end: 20131106
  5. AMIODARONE [Concomitant]
     Active Substance: AMIODARONE
     Route: 065
  6. HYDROCHLOROTHIAZIDE. [Concomitant]
     Active Substance: HYDROCHLOROTHIAZIDE
     Route: 065
     Dates: start: 20130925, end: 20131106
  7. CONCOR [Concomitant]
     Active Substance: BISOPROLOL FUMARATE
     Route: 065
  8. CORDARONE [Concomitant]
     Active Substance: AMIODARONE HYDROCHLORIDE
     Route: 065

REACTIONS (5)
  - Asthenia [Recovering/Resolving]
  - Melaena [Recovering/Resolving]
  - Dyspnoea [Recovering/Resolving]
  - Haemorrhagic anaemia [Recovering/Resolving]
  - Acute kidney injury [Recovering/Resolving]

NARRATIVE: CASE EVENT DATE: 20131106
